FAERS Safety Report 5442589-X (Version None)
Quarter: 2007Q3

REPORT INFORMATION
  Report Type: 
  Country: None (occurrence: None)
  Receive Date: 20070904
  Receipt Date: 20070821
  Transmission Date: 20080115
  Serious: Yes (Hospitalization, Other)
  Sender: FDA-Public Use
  Company Number: US-SHR-US-2005-019026

PATIENT
  Age: 51 Year
  Sex: Female
  Weight: 108 kg

DRUGS (20)
  1. BETASERON [Suspect]
     Indication: RELAPSING-REMITTING MULTIPLE SCLEROSIS
     Dosage: 8 MIU, EVERY 2D
     Route: 058
     Dates: start: 20021210
  2. HYDROCHLOROTHIAZIDE [Concomitant]
     Dosage: 25 MG, UNK
     Route: 048
     Dates: start: 19760101
  3. POTASSIUM CHLORIDE [Concomitant]
     Dosage: 10 MG, UNK
     Route: 048
  4. ASACOL [Concomitant]
     Dosage: 400 MG, 3X/DAY
  5. AMANTADINE HCL [Concomitant]
     Indication: RELAPSING-REMITTING MULTIPLE SCLEROSIS
     Dosage: 100 MG, 3X/DAY
  6. MOBIC [Concomitant]
     Dosage: 15 MG, UNK
     Route: 048
     Dates: start: 20040101
  7. TRAZODONE HCL [Concomitant]
     Dosage: 50 MG, BED T.
  8. SKELAXIN [Concomitant]
  9. PRILOSEC [Concomitant]
     Dosage: 20 MG, UNK
     Route: 048
     Dates: start: 20000101
  10. MYSOLINE [Concomitant]
  11. GLUCOSAMINE [Concomitant]
  12. VITAMIN CAP [Concomitant]
  13. CALCIUM WITH VITAMIN D [Concomitant]
  14. VITAMIN B COMPLEX WITH C [Concomitant]
  15. BACLOFEN [Concomitant]
     Indication: RELAPSING-REMITTING MULTIPLE SCLEROSIS
     Dosage: 10 MG, 3X/DAY
  16. LEVBID [Concomitant]
     Dosage: .372 MG, 1X/DAY
  17. PRIMIDONE [Concomitant]
     Indication: TREMOR
     Dosage: 100 MG, BED T.
  18. SINGULAIR [Concomitant]
     Indication: ASTHMA
     Dosage: 10 MG, 1X/DAY
  19. FOLIC ACID [Concomitant]
  20. FIBER CAPS [Concomitant]

REACTIONS (14)
  - ARTHRALGIA [None]
  - ARTHROPATHY [None]
  - BACK DISORDER [None]
  - CYST [None]
  - FLUID RETENTION [None]
  - GAIT DISTURBANCE [None]
  - INTERVERTEBRAL DISC DEGENERATION [None]
  - INTERVERTEBRAL DISC PROTRUSION [None]
  - KYPHOSIS [None]
  - MULTIPLE SCLEROSIS [None]
  - MYELOPATHY [None]
  - SPINAL COLUMN STENOSIS [None]
  - SPINAL OSTEOARTHRITIS [None]
  - SPONDYLOLISTHESIS [None]
